FAERS Safety Report 6155969-4 (Version None)
Quarter: 2009Q2

REPORT INFORMATION
  Report Type: 
  Country: None (occurrence: None)
  Receive Date: 20090415
  Receipt Date: 20090407
  Transmission Date: 20091009
  Serious: Yes (Hospitalization)
  Sender: FDA-Public Use
  Company Number: US-ROCHE-626191

PATIENT
  Sex: Female

DRUGS (2)
  1. XELODA [Suspect]
     Indication: DRUG USE FOR UNKNOWN INDICATION
     Dosage: RECEIVED FOR 2 DAYS
     Route: 065
     Dates: start: 20090214
  2. TYKERB [Suspect]
     Indication: DRUG USE FOR UNKNOWN INDICATION
     Dosage: RECEIVED FOR 2 DAYS
     Route: 048
     Dates: start: 20090214

REACTIONS (4)
  - DEPRESSION [None]
  - FATIGUE [None]
  - NAUSEA [None]
  - PANCREATITIS [None]
